FAERS Safety Report 6414091-X (Version None)
Quarter: 2009Q4

REPORT INFORMATION
  Report Type: 
  Country: None (occurrence: None)
  Receive Date: 20091026
  Receipt Date: 20091016
  Transmission Date: 20100525
  Serious: Yes (Other)
  Sender: FDA-Public Use
  Company Number: CA-ABBOTT-09P-028-0602554-00

PATIENT
  Sex: Male
  Weight: 82.5 kg

DRUGS (4)
  1. MAVIK [Suspect]
     Indication: HYPERTENSION
     Dates: start: 20090714, end: 20090718
  2. FUROSEMIDE [Concomitant]
     Indication: CARDIAC FAILURE CONGESTIVE
     Dates: start: 20090718
  3. ADALAT CC [Concomitant]
     Indication: CARDIAC FAILURE CONGESTIVE
     Dates: start: 20090717
  4. ADALAT CC [Concomitant]
     Indication: HYPERTENSION

REACTIONS (2)
  - CARDIAC FAILURE CONGESTIVE [None]
  - DYSPNOEA [None]
